FAERS Safety Report 8512410-1 (Version None)
Quarter: 2012Q3

REPORT INFORMATION
  Report Type: 
  Country: None (occurrence: None)
  Receive Date: 20120716
  Receipt Date: 20120704
  Transmission Date: 20120928
  Serious: Yes (Other)
  Sender: FDA-Public Use
  Company Number: TW-CELGENEUS-153-20785-12070378

PATIENT

DRUGS (7)
  1. PREDNISONE [Concomitant]
     Indication: MULTIPLE MYELOMA
     Route: 065
     Dates: start: 20040101, end: 20120101
  2. NTERFERON ALFA [Concomitant]
     Indication: MULTIPLE MYELOMA
     Route: 065
     Dates: start: 20040101, end: 20120101
  3. ASPIRIN [Concomitant]
     Indication: MULTIPLE MYELOMA
     Route: 048
  4. THALIDOMIDE [Suspect]
     Indication: MULTIPLE MYELOMA
     Dosage: 50 -400
     Route: 048
     Dates: start: 20040101, end: 20120101
  5. DEXAMETHASONE [Concomitant]
     Indication: MULTIPLE MYELOMA
     Dosage: 40 -480 MG
     Route: 065
     Dates: start: 20040101, end: 20120101
  6. WARFARIN SODIUM [Concomitant]
     Indication: MULTIPLE MYELOMA
     Route: 048
  7. MELPHALAN HYDROCHLORIDE [Concomitant]
     Indication: MULTIPLE MYELOMA
     Route: 065
     Dates: start: 20040101, end: 20120101

REACTIONS (6)
  - DEEP VEIN THROMBOSIS [None]
  - ACUTE MYOCARDIAL INFARCTION [None]
  - PULMONARY EMBOLISM [None]
  - ARTERIAL THROMBOSIS LIMB [None]
  - EMBOLISM VENOUS [None]
  - ARTERIAL THROMBOSIS [None]
